FAERS Safety Report 10404259 (Version 1)
Quarter: 2014Q1

REPORT INFORMATION
  Report Type: Spontaneous
  Country: US (occurrence: None)
  Receive Date: 20140131
  Receipt Date: 20140131
  Transmission Date: 20141002
  Serious: Yes (Other)
  Sender: FDA-Public Use
  Company Number: 064403

PATIENT
  Sex: Female
  Weight: 68 kg

DRUGS (2)
  1. KEPPRA [Suspect]
     Indication: EPILEPSY
     Dates: start: 20120705, end: 201209
  2. TEGRETOL [Suspect]
     Dates: start: 2012

REACTIONS (4)
  - Convulsion [None]
  - Depression [None]
  - Overdose [None]
  - Agitation [None]
